FAERS Safety Report 6706356-9 (Version None)
Quarter: 2010Q2

REPORT INFORMATION
  Report Type: 
  Country: None (occurrence: None)
  Receive Date: 20100503
  Receipt Date: 20100426
  Transmission Date: 20101027
  Serious: Yes (Hospitalization, Other)
  Sender: FDA-Public Use
  Company Number: US-ELI_LILLY_AND_COMPANY-US201004007161

PATIENT
  Sex: Female

DRUGS (19)
  1. BYETTA [Suspect]
     Indication: DIABETES MELLITUS
     Dosage: 5 UG, 2/D
     Route: 058
     Dates: start: 20050808, end: 20050908
  2. BYETTA [Suspect]
     Dosage: 10 UG, 2/D
     Route: 058
     Dates: start: 20050908
  3. ZYRTEC [Concomitant]
     Dosage: 10 MG, DAILY (1/D)
  4. SYNTHROID [Concomitant]
     Dosage: 0.125 MG, 5/W
  5. SYNTHROID [Concomitant]
     Dosage: 0.187 MG, 2/W
  6. REQUIP [Concomitant]
     Dosage: 2 MG, UNK
  7. MACRODANTIN [Concomitant]
     Dosage: 50 MG, AS NEEDED
  8. MAXAIR [Concomitant]
     Dosage: UNK, AS NEEDED
  9. SINGULAIR [Concomitant]
     Dosage: 10 MG, UNK
  10. LOVASTATIN [Concomitant]
     Dosage: 40 MG, DAILY (1/D)
  11. ALLERGENS EXTRACT NOS [Concomitant]
     Dosage: UNK, 2/W
  12. CLONAZEPAM [Concomitant]
     Dosage: 1 MG, AS NEEDED
  13. CLONAZEPAM [Concomitant]
     Dosage: 2 MG, AS NEEDED
  14. PERI-COLACE [Concomitant]
     Dosage: 200 MG, DAILY (1/D)
  15. TRI-LUMA [Concomitant]
  16. ASTELIN [Concomitant]
  17. VAGIFEM [Concomitant]
     Dosage: 25 MG, 2/W
  18. OXYCODONE [Concomitant]
     Dosage: 15 MG, 4/D
  19. POTASSIUM CITRATE [Concomitant]
     Dosage: 2160 MG, 2/D

REACTIONS (6)
  - GASTRIC BYPASS [None]
  - HERNIA REPAIR [None]
  - HYDRONEPHROSIS [None]
  - NEPHROLITHIASIS [None]
  - STENT PLACEMENT [None]
  - THYROID CANCER [None]
